FAERS Safety Report 14838850 (Version 1)
Quarter: 2018Q2

REPORT INFORMATION
  Report Type: Spontaneous
  Country: CN (occurrence: CN)
  Receive Date: 20180502
  Receipt Date: 20180502
  Transmission Date: 20180711
  Serious: Yes (Hospitalization, Other)
  Sender: FDA-Public Use
  Company Number: CN-PFIZER INC-2018177881

PATIENT
  Age: 24 Day
  Sex: Female
  Weight: 3.7 kg

DRUGS (1)
  1. MEPEM [Suspect]
     Active Substance: MEROPENEM
     Indication: INFECTION
     Dosage: 75 MG, DAILY
     Route: 041
     Dates: start: 20180325, end: 20180325

REACTIONS (2)
  - Eyelid oedema [Recovered/Resolved]
  - Anaphylactic reaction [Recovered/Resolved]

NARRATIVE: CASE EVENT DATE: 20180325
